FAERS Safety Report 8320013-7 (Version None)
Quarter: 2012Q2

REPORT INFORMATION
  Report Type: 
  Country: None (occurrence: None)
  Receive Date: 20120427
  Receipt Date: 20120416
  Transmission Date: 20120825
  Serious: Yes (Death)
  Sender: FDA-Public Use
  Company Number: JP-BAXTER-2012BAX003014

PATIENT
  Sex: Male
  Weight: 52 kg

DRUGS (2)
  1. EXTRANEAL [Suspect]
     Route: 033
     Dates: end: 20120410
  2. DIANEAL-N PD-2 2.5 PD SOLUTION [Suspect]
     Route: 033
     Dates: end: 20120410

REACTIONS (1)
  - CARDIAC FAILURE [None]
